FAERS Safety Report 10196724 (Version 1)
Quarter: 2014Q2

REPORT INFORMATION
  Report Type: Spontaneous
  Country: DK (occurrence: GB)
  Receive Date: 20140527
  Receipt Date: 20140527
  Transmission Date: 20141212
  Serious: Yes (Other)
  Sender: FDA-Public Use
  Company Number: GB-FRI-1000067559

PATIENT
  Age: 46 Year
  Sex: Male

DRUGS (5)
  1. CITALOPRAM [Suspect]
     Indication: DEPRESSION
     Route: 048
  2. MIRTAZAPINE [Suspect]
     Indication: DEPRESSION
  3. SEROXAT [Suspect]
     Indication: DEPRESSION
  4. TERBINAFINE [Suspect]
     Indication: TINEA INFECTION
     Route: 048
     Dates: start: 2013, end: 2013
  5. TERBINAFINE [Suspect]
     Indication: DERMAL CYST

REACTIONS (12)
  - Anxiety [Unknown]
  - Feeling abnormal [Unknown]
  - Tremor [Unknown]
  - Formication [Unknown]
  - Skin exfoliation [Unknown]
  - Somatic delusion [Unknown]
  - Stress [Unknown]
  - Musculoskeletal stiffness [Unknown]
  - Alopecia [Unknown]
  - Speech disorder [Unknown]
  - Drug abuse [Unknown]
  - Alcohol use [Unknown]
